FAERS Safety Report 9386259 (Version 1)
Quarter: 2013Q3

REPORT INFORMATION
  Report Type: Spontaneous
  Country: VE (occurrence: VE)
  Receive Date: 20130708
  Receipt Date: 20130708
  Transmission Date: 20140515
  Serious: Yes (Death)
  Sender: FDA-Public Use
  Company Number: VE-AMGEN-VENSP2013047221

PATIENT
  Age: 80 Year
  Sex: Female
  Weight: 54 kg

DRUGS (1)
  1. VECTIBIX [Suspect]
     Indication: COLORECTAL CANCER METASTATIC
     Dosage: 324 MG, EVERY 15 DAYS
     Route: 042
     Dates: start: 20120530, end: 20130320

REACTIONS (2)
  - Cardiac failure [Fatal]
  - Pulmonary oedema [Fatal]
